FAERS Safety Report 5179656-4 (Version None)
Quarter: 2006Q4

REPORT INFORMATION
  Report Type: 
  Country: None (occurrence: None)
  Receive Date: 20061212
  Receipt Date: 20061122
  Transmission Date: 20070319
  Serious: Yes (Hospitalization)
  Sender: FDA-Public Use
  Company Number: 2006SP005933

PATIENT
  Age: 48 Year
  Sex: Male
  Weight: 88.5 kg

DRUGS (6)
  1. PEGATRON [Suspect]
     Indication: HEPATITIS C
     Dosage: 150 MCG;QW;SC
     Route: 058
     Dates: start: 20060519, end: 20061103
  2. PEGATRON             (PEGYLATED  INTERFERON ALFA-2B W/ RIBAVIRIN) [Suspect]
     Dosage: 1200 MG;QD;PO
     Route: 048
     Dates: start: 20060519, end: 20061109
  3. PANADOL [Concomitant]
  4. PARIET [Concomitant]
  5. TEMAZEPAM [Concomitant]
  6. SERTRALINE [Concomitant]

REACTIONS (3)
  - DEPRESSION [None]
  - ECZEMA [None]
  - PRURITUS [None]
